FAERS Safety Report 19474802 (Version 1)
Quarter: 2021Q2

REPORT INFORMATION
  Report Type: Spontaneous
  Country: US (occurrence: US)
  Receive Date: 20210629
  Receipt Date: 20210629
  Transmission Date: 20210717
  Serious: No
  Sender: FDA-Public Use
  Company Number: US-SA-2021SA201702

PATIENT
  Age: 66 Year
  Sex: Female

DRUGS (1)
  1. ALLEGRA?D 24 HOUR [Suspect]
     Active Substance: FEXOFENADINE HYDROCHLORIDE\PSEUDOEPHEDRINE HYDROCHLORIDE
     Indication: SEASONAL ALLERGY
     Dosage: 180/240MG ONCE
     Route: 065

REACTIONS (4)
  - Unevaluable event [Unknown]
  - Insomnia [Unknown]
  - Feeling jittery [Unknown]
  - Heart rate increased [Unknown]
